FAERS Safety Report 8461935-6 (Version None)
Quarter: 2012Q2

REPORT INFORMATION
  Report Type: 
  Country: None (occurrence: None)
  Receive Date: 20120625
  Receipt Date: 20120614
  Transmission Date: 20120825
  Serious: Yes (Death, Hospitalization, Other)
  Sender: FDA-Public Use
  Company Number: MX-SANOFI-AVENTIS-2012SA042981

PATIENT
  Age: 58 Year
  Sex: Female

DRUGS (1)
  1. LANTUS [Suspect]
     Indication: TYPE 2 DIABETES MELLITUS
     Dosage: DOSE: 35 IU IN THE MORNING AND 10 IU IN NIGHT
     Route: 065
     Dates: start: 20090101, end: 20120527

REACTIONS (4)
  - HEPATIC NEOPLASM MALIGNANT [None]
  - ABDOMINAL PAIN [None]
  - HYPERTENSION [None]
  - DRUG ADMINISTRATION ERROR [None]
